FAERS Safety Report 4521847-7 (Version None)
Quarter: 2004Q4

REPORT INFORMATION
  Report Type: 
  Country: None (occurrence: None)
  Receive Date: 20041209
  Receipt Date: 20041202
  Transmission Date: 20050328
  Serious: Yes (Hospitalization)
  Sender: FDA-Public Use
  Company Number: US-JNJFOC-20041201242

PATIENT
  Sex: Female
  Weight: 97.52 kg

DRUGS (4)
  1. DURAGESIC [Suspect]
     Route: 062
  2. XANAX [Concomitant]
     Indication: DEPRESSION
     Route: 049
  3. LORCET-HD [Concomitant]
     Route: 049
  4. LORCET-HD [Concomitant]
     Indication: PAIN
     Dosage: 10/650
     Route: 049

REACTIONS (4)
  - CATHETER RELATED COMPLICATION [None]
  - MEDICAL DEVICE COMPLICATION [None]
  - PYREXIA [None]
  - THROMBOSIS [None]
